FAERS Safety Report 18356487 (Version 1)
Quarter: 2020Q4

REPORT INFORMATION
  Report Type: Spontaneous
  Country: BR (occurrence: BR)
  Receive Date: 20201007
  Receipt Date: 20201007
  Transmission Date: 20210114
  Serious: Yes (Hospitalization)
  Sender: FDA-Public Use
  Company Number: BR-TAKEDA-2020TUS040115

PATIENT
  Age: 25 Year
  Sex: Male
  Weight: 62 kg

DRUGS (2)
  1. MOTILIUM [Concomitant]
     Active Substance: DOMPERIDONE
     Indication: GASTRITIS
     Dosage: 10 MILLILITER, QD
     Route: 048
     Dates: start: 202009
  2. DEXILANT [Suspect]
     Active Substance: DEXLANSOPRAZOLE
     Indication: GASTRITIS
     Dosage: 60 MILLIGRAM
     Route: 048
     Dates: start: 202008, end: 20200916

REACTIONS (5)
  - Adverse event [Recovering/Resolving]
  - Off label use [Unknown]
  - Oesophageal irritation [Recovering/Resolving]
  - Feeding disorder [Recovering/Resolving]
  - Platelet count decreased [Recovered/Resolved]

NARRATIVE: CASE EVENT DATE: 202008
